FAERS Safety Report 12236572 (Version 4)
Quarter: 2016Q2

REPORT INFORMATION
  Report Type: Spontaneous
  Country: ES (occurrence: ES)
  Receive Date: 20160405
  Receipt Date: 20160524
  Transmission Date: 20160815
  Serious: Yes (Hospitalization, Other)
  Sender: FDA-Public Use
  Company Number: ES-AUROBINDO-AUR-APL-2016-04079

PATIENT
  Age: 71 Year
  Sex: Female

DRUGS (34)
  1. MIRTAZAPINE. [Interacting]
     Active Substance: MIRTAZAPINE
     Indication: INSOMNIA
     Dosage: 7.5 MG IN THE EVENING
     Route: 065
  2. TRAMADOL. [Suspect]
     Active Substance: TRAMADOL
     Indication: PRODUCT USED FOR UNKNOWN INDICATION
     Dosage: 75 MG, TWO TIMES A DAY
     Route: 065
  3. LORAZEPAM. [Concomitant]
     Active Substance: LORAZEPAM
     Indication: PRODUCT USED FOR UNKNOWN INDICATION
     Dosage: 0.5 MG, ONCE A DAY
     Route: 065
  4. FENTANYL. [Interacting]
     Active Substance: FENTANYL
     Dosage: 50 MG/10 CM2
  5. PREGABALIN. [Concomitant]
     Active Substance: PREGABALIN
     Dosage: 75 MG: 0-0-1
  6. FENTANYL. [Interacting]
     Active Substance: FENTANYL
     Dosage: 50 MG/10 CM2
  7. PARACETAMOL [Concomitant]
     Active Substance: ACETAMINOPHEN
     Indication: PRODUCT USED FOR UNKNOWN INDICATION
     Dosage: 1 G, 3 TIMES A DAY
     Route: 065
  8. PARACETAMOL [Concomitant]
     Active Substance: ACETAMINOPHEN
     Dosage: 1 G: 1-1-1
  9. PARACETAMOL [Concomitant]
     Active Substance: ACETAMINOPHEN
     Dosage: 1 G: 1-1-1
  10. TRAMADOL. [Concomitant]
     Active Substance: TRAMADOL
     Indication: PRODUCT USED FOR UNKNOWN INDICATION
     Dosage: 75 MG, TWO TIMES A DAY
     Route: 065
  11. SPIRONOLACTON [Concomitant]
     Active Substance: SPIRONOLACTONE
     Indication: PRODUCT USED FOR UNKNOWN INDICATION
     Dosage: 25 MG, ONCE A DAY
     Route: 065
  12. SIMVASTATIN. [Concomitant]
     Active Substance: SIMVASTATIN
     Dosage: 20 MG: 0-0-1
  13. PREGABALIN. [Concomitant]
     Active Substance: PREGABALIN
     Dosage: 75 MG: 0-0-1
  14. FENTANYL. [Interacting]
     Active Substance: FENTANYL
     Dosage: 50 MG/10CM2
     Route: 062
  15. SIMVASTATIN. [Concomitant]
     Active Substance: SIMVASTATIN
     Indication: PRODUCT USED FOR UNKNOWN INDICATION
     Dosage: 20 MG, ONCE A DAY
     Route: 065
  16. BISOPROLOL [Concomitant]
     Active Substance: BISOPROLOL
     Indication: PRODUCT USED FOR UNKNOWN INDICATION
     Route: 065
  17. BISOPROLOL [Concomitant]
     Active Substance: BISOPROLOL
     Dosage: 5 MG: 1-0-0
  18. ENALAPRIL [Concomitant]
     Active Substance: ENALAPRIL
     Dosage: 5 MG: 1-0-0
  19. MIRTAZAPINE. [Interacting]
     Active Substance: MIRTAZAPINE
     Indication: DEPRESSION
  20. FENTANYL. [Interacting]
     Active Substance: FENTANYL
     Dosage: 25 MG/10 CM2
  21. LORAZEPAM. [Concomitant]
     Active Substance: LORAZEPAM
  22. ACENOCOUMAROL [Concomitant]
     Active Substance: ACENOCOUMAROL
     Indication: PRODUCT USED FOR UNKNOWN INDICATION
     Route: 065
  23. BISOPROLOL [Concomitant]
     Active Substance: BISOPROLOL
     Dosage: 5 MG: 1-0-0
  24. ENALAPRIL [Concomitant]
     Active Substance: ENALAPRIL
     Dosage: 5 MG: 1-0-0
  25. PREGABALIN. [Concomitant]
     Active Substance: PREGABALIN
     Indication: PRODUCT USED FOR UNKNOWN INDICATION
     Dosage: 75 MG, ONCE A DAY
     Route: 065
  26. FENTANYL. [Interacting]
     Active Substance: FENTANYL
     Indication: BACK PAIN
     Dosage: 50 MG/10 CM2
     Route: 062
  27. FENTANYL. [Interacting]
     Active Substance: FENTANYL
     Dosage: 25 MG/10 CM2
  28. SIMVASTATIN. [Concomitant]
     Active Substance: SIMVASTATIN
     Dosage: 20 MG: 0-0-1
  29. DULOXETINE 30 MG [Suspect]
     Active Substance: DULOXETINE
     Indication: DEPRESSION
     Dosage: 30 MG, ONCE A DAY
     Route: 065
  30. LORAZEPAM. [Concomitant]
     Active Substance: LORAZEPAM
  31. FUROSEMIDE. [Concomitant]
     Active Substance: FUROSEMIDE
     Indication: PRODUCT USED FOR UNKNOWN INDICATION
     Dosage: 40 MG, TWO TIMES A DAY
     Route: 065
  32. FUROSEMIDE. [Concomitant]
     Active Substance: FUROSEMIDE
     Dosage: 40 MG: 2-0-0
  33. FUROSEMIDE. [Concomitant]
     Active Substance: FUROSEMIDE
     Dosage: 40 MG: 2-0-0
  34. ENALAPRIL [Concomitant]
     Active Substance: ENALAPRIL
     Indication: PRODUCT USED FOR UNKNOWN INDICATION
     Dosage: 5 MG, ONCE A DAY
     Route: 065

REACTIONS (5)
  - Myoclonus [Recovering/Resolving]
  - Drug interaction [Recovering/Resolving]
  - Renal impairment [Recovered/Resolved]
  - Neurotoxicity [Recovering/Resolving]
  - Overdose [Recovering/Resolving]
